FAERS Safety Report 17570551 (Version 1)
Quarter: 2020Q1

REPORT INFORMATION
  Report Type: Report from Study
  Country: NL (occurrence: NL)
  Receive Date: 20200323
  Receipt Date: 20200323
  Transmission Date: 20200409
  Serious: Yes (Other)
  Sender: FDA-Public Use
  Company Number: NL-TEVA-2020-NL-1206197

PATIENT
  Age: 52 Year
  Sex: Female

DRUGS (3)
  1. MESALAZINE ZETPIL [Concomitant]
     Dosage: 500 MILLIGRAM DAILY; 500MG, 1X/D
     Dates: start: 20120925, end: 20181217
  2. MERCAPTOPURINE. [Concomitant]
     Active Substance: MERCAPTOPURINE
     Dosage: 50 MILLIGRAM DAILY; 50MG, 1X/D
     Dates: start: 20120925, end: 20190605
  3. METHOTREXATE (METHOTREXATE SODIUM) [Suspect]
     Active Substance: METHOTREXATE SODIUM
     Indication: COLITIS ULCERATIVE
     Dosage: 1 DOSAGE FORM, 1X/W
     Dates: start: 20141007, end: 20150317

REACTIONS (1)
  - Respiratory tract infection [Recovered/Resolved]

NARRATIVE: CASE EVENT DATE: 20150317
